FAERS Safety Report 25780181 (Version 1)
Quarter: 2025Q3

REPORT INFORMATION
  Report Type: Spontaneous
  Country: US (occurrence: US)
  Receive Date: 20250909
  Receipt Date: 20250909
  Transmission Date: 20251021
  Serious: No
  Sender: BAUSCH AND LOMB
  Company Number: US-BAUSCHBL-2025BNL015679

PATIENT
  Age: 53 Year
  Sex: Female

DRUGS (1)
  1. ALAWAY [Suspect]
     Active Substance: KETOTIFEN FUMARATE
     Indication: Hypersensitivity
     Dosage: ONCE DAILY AT NIGHT
     Route: 047
     Dates: start: 202508, end: 20250902

REACTIONS (4)
  - Pain [Unknown]
  - Eye pruritus [Unknown]
  - Reaction to preservatives [Unknown]
  - Inappropriate schedule of product administration [Unknown]

NARRATIVE: CASE EVENT DATE: 20250101
